FAERS Safety Report 5870748-0 (Version None)
Quarter: 2008Q3

REPORT INFORMATION
  Report Type: 
  Country: None (occurrence: None)
  Receive Date: 20080904
  Receipt Date: 20080903
  Transmission Date: 20090109
  Serious: Yes (Other)
  Sender: FDA-Public Use
  Company Number: US-ROCHE-234854

PATIENT
  Age: 28 Year
  Sex: Female

DRUGS (1)
  1. XENICAL [Suspect]
     Indication: OBESITY
     Route: 048
     Dates: start: 19990801, end: 19990912

REACTIONS (1)
  - FOETAL GROWTH RETARDATION [None]
